FAERS Safety Report 8548964-9 (Version None)
Quarter: 2012Q3

REPORT INFORMATION
  Report Type: 
  Country: None (occurrence: None)
  Receive Date: 20120730
  Receipt Date: 20120719
  Transmission Date: 20120928
  Serious: Yes (Hospitalization)
  Sender: FDA-Public Use
  Company Number: JP-VERTEX PHARMACEUTICALS INC.-AE-2012-010809

PATIENT
  Age: 66 Year
  Sex: Male

DRUGS (12)
  1. PEGINTERFERON ALFA-2B [Concomitant]
     Route: 058
  2. TELAVIC (TELAPREVIR) [Suspect]
     Indication: HEPATITIS C
     Route: 048
     Dates: start: 20120316, end: 20120318
  3. TELAVIC (TELAPREVIR) [Suspect]
     Route: 048
  4. MEFENAMIC ACID [Concomitant]
     Route: 048
     Dates: start: 20120507
  5. FAMOTIDINE [Concomitant]
     Route: 048
  6. RIBAVIRIN [Concomitant]
     Route: 048
  7. PEGINTERFERON ALFA-2B [Concomitant]
     Indication: HEPATITIS C
     Route: 058
     Dates: start: 20120316, end: 20120318
  8. DIFLAL [Concomitant]
     Route: 061
  9. PREDNISOLONE [Concomitant]
     Route: 048
     Dates: end: 20120506
  10. PREDNISOLONE [Concomitant]
     Route: 048
     Dates: start: 20120507, end: 20120514
  11. RIBAVIRIN [Concomitant]
     Indication: HEPATITIS C
     Route: 048
     Dates: start: 20120316, end: 20120318
  12. VOLTAREN [Concomitant]
     Route: 054
     Dates: start: 20120316, end: 20120317

REACTIONS (2)
  - ERYTHEMA [None]
  - PYREXIA [None]
